FAERS Safety Report 5866914-0 (Version None)
Quarter: 2008Q3

REPORT INFORMATION
  Report Type: 
  Country: None (occurrence: None)
  Receive Date: 20080902
  Receipt Date: 20080822
  Transmission Date: 20090109
  Serious: Yes (Other)
  Sender: FDA-Public Use
  Company Number: FR-BAYER-200825178GPV

PATIENT
  Age: 62 Year
  Sex: Male

DRUGS (1)
  1. MABCAMPATH [Suspect]
     Indication: MYCOSIS FUNGOIDES
     Dates: start: 20080101

REACTIONS (2)
  - CONGESTIVE CARDIOMYOPATHY [None]
  - DYSPNOEA [None]
